FAERS Safety Report 23759390 (Version 1)
Quarter: 2024Q2

REPORT INFORMATION
  Report Type: Spontaneous
  Country: US (occurrence: US)
  Receive Date: 20240418
  Receipt Date: 20240418
  Transmission Date: 20240715
  Serious: Yes (Other)
  Sender: FDA-Public Use
  Company Number: US-SANDOZ-SDZ2024US039210

PATIENT
  Age: 41 Year
  Sex: Male

DRUGS (4)
  1. PREDNISONE [Suspect]
     Active Substance: PREDNISONE
     Indication: Myasthenia gravis
     Route: 065
  2. PREDNISONE [Suspect]
     Active Substance: PREDNISONE
     Indication: Diplopia
  3. PREDNISONE [Suspect]
     Active Substance: PREDNISONE
     Indication: Eyelid ptosis
  4. PREDNISONE [Suspect]
     Active Substance: PREDNISONE
     Indication: Muscular weakness

REACTIONS (2)
  - Myasthenia gravis [Unknown]
  - Condition aggravated [Unknown]
